FAERS Safety Report 18000733 (Version 7)
Quarter: 2020Q4

REPORT INFORMATION
  Report Type: Spontaneous
  Country: PL (occurrence: PL)
  Receive Date: 20200709
  Receipt Date: 20201015
  Transmission Date: 20210113
  Serious: Yes (Other)
  Sender: FDA-Public Use
  Company Number: NVSC2020PL191923

PATIENT
  Age: 67 Year
  Sex: Female

DRUGS (11)
  1. LETROZOLE. [Suspect]
     Active Substance: LETROZOLE
     Indication: HORMONE RECEPTOR POSITIVE BREAST CANCER
     Dosage: COMBINATION WITH ZOLEDRONIC ACID
     Route: 065
     Dates: start: 2018
  2. LETROZOLE. [Suspect]
     Active Substance: LETROZOLE
     Dosage: UNK
     Route: 065
     Dates: start: 201911
  3. ZOLEDRONIC ACID [Suspect]
     Active Substance: ZOLEDRONIC ACID
     Indication: ADJUVANT THERAPY
  4. ZOLEDRONIC ACID [Suspect]
     Active Substance: ZOLEDRONIC ACID
     Indication: BREAST CANCER
     Dosage: UNK DF, Q3MO (4MG/5ML)
     Route: 065
     Dates: start: 201811
  5. LETROZOLE. [Suspect]
     Active Substance: LETROZOLE
     Indication: BREAST CANCER
     Dosage: 2.5 MG, COMBINATION WITH RIBOCICLIB
     Route: 065
     Dates: start: 201811
  6. ZOLEDRONIC ACID [Suspect]
     Active Substance: ZOLEDRONIC ACID
     Indication: BREAST CANCER METASTATIC
  7. LETROZOLE. [Suspect]
     Active Substance: LETROZOLE
     Indication: BREAST CANCER METASTATIC
     Dosage: 2.5 MG COMBINATION WITH RIBOCICLIB
     Route: 065
     Dates: start: 201811
  8. LETROZOLE. [Suspect]
     Active Substance: LETROZOLE
     Dosage: UNK CONTINUOUS TREATMENT
     Route: 065
     Dates: start: 201811
  9. RIBOCICLIB. [Suspect]
     Active Substance: RIBOCICLIB
     Indication: BREAST CANCER METASTATIC
     Dosage: UNK
     Route: 065
     Dates: start: 201911
  10. RIBOCICLIB. [Suspect]
     Active Substance: RIBOCICLIB
     Indication: HORMONE RECEPTOR POSITIVE BREAST CANCER
  11. RIBOCICLIB. [Suspect]
     Active Substance: RIBOCICLIB
     Indication: BREAST CANCER
     Dosage: 600 MG DAILY FOR 21 CONSECUTIVE DAYS WITH 7 DAYS OFF
     Route: 065
     Dates: start: 201811

REACTIONS (4)
  - Haematotoxicity [Unknown]
  - Hepatotoxicity [Recovered/Resolved]
  - Pruritus [Unknown]
  - Neutropenia [Recovered/Resolved]

NARRATIVE: CASE EVENT DATE: 2018
